FAERS Safety Report 5141848-8 (Version None)
Quarter: 2006Q4

REPORT INFORMATION
  Report Type: 
  Country: None (occurrence: None)
  Receive Date: 20061027
  Receipt Date: 20061012
  Transmission Date: 20070319
  Serious: Yes (Disabling)
  Sender: FDA-Public Use
  Company Number: JP200610002670

PATIENT
  Age: 32 Year
  Sex: Female

DRUGS (6)
  1. ZYPREXA [Suspect]
     Indication: SCHIZOPHRENIA
     Dosage: ORAL ; 2.5 MG DAILY ORAL
     Route: 048
     Dates: start: 20020101, end: 20041101
  2. ZYPREXA [Suspect]
     Indication: SCHIZOPHRENIA
     Dosage: ORAL ; 2.5 MG DAILY ORAL
     Route: 048
     Dates: end: 20061005
  3. RISPERDAL [Concomitant]
  4. SEROQUEL [Concomitant]
  5. TOLOPENOL (TIMIPERONE) [Concomitant]
  6. LULLAN /JPN/ (PEROSPIRONE HYDROCHLORIDE) [Concomitant]

REACTIONS (1)
  - EYELID PTOSIS [None]
